FAERS Safety Report 12475818 (Version 2)
Quarter: 2016Q3

REPORT INFORMATION
  Report Type: Spontaneous
  Country: CA (occurrence: CA)
  Receive Date: 20160617
  Receipt Date: 20160811
  Transmission Date: 20161109
  Serious: Yes (Other)
  Sender: FDA-Public Use
  Company Number: CA-JNJFOC-20160610808

PATIENT
  Age: 18 Year
  Sex: Female
  Weight: 66 kg

DRUGS (4)
  1. MICRONOR [Suspect]
     Active Substance: NORETHINDRONE
     Indication: DYSMENORRHOEA
     Dosage: PATIENT WAS BACK ON NORETHISTERONE  FOR TWO MONTHS
     Route: 065
  2. MICRONOR [Suspect]
     Active Substance: NORETHINDRONE
     Indication: CONTRACEPTION
     Dosage: PATIENT WAS BACK ON NORETHISTERONE  FOR TWO MONTHS
     Route: 065
  3. MICRONOR [Suspect]
     Active Substance: NORETHINDRONE
     Indication: CONTRACEPTION
     Route: 065
     Dates: start: 20160429, end: 20160527
  4. MICRONOR [Suspect]
     Active Substance: NORETHINDRONE
     Indication: DYSMENORRHOEA
     Route: 065
     Dates: start: 20160429, end: 20160527

REACTIONS (1)
  - Syncope [Recovered/Resolved]

NARRATIVE: CASE EVENT DATE: 20160527
